FAERS Safety Report 12216150 (Version 3)
Quarter: 2016Q3

REPORT INFORMATION
  Report Type: Spontaneous
  Country: GB (occurrence: GB)
  Receive Date: 20160329
  Receipt Date: 20160708
  Transmission Date: 20161109
  Serious: Yes (Other)
  Sender: FDA-Public Use
  Company Number: GB-AUROBINDO-AUR-APL-2016-03703

PATIENT
  Age: 22 Year
  Sex: Female

DRUGS (4)
  1. LAMOTRIGINE TABLET [Suspect]
     Active Substance: LAMOTRIGINE
     Dosage: 200 MG, UNK ,200 MILLIGRAM DAILY; UNK
     Route: 048
  2. LAMOTRIGINE TABLET [Suspect]
     Active Substance: LAMOTRIGINE
     Indication: SEIZURE
     Dosage: 100 MG, UNK, 150 MILLIGRAM DAILY; ONE 100MG TABLET AND HALF 100 MG TABLET
     Route: 065
  3. LAMICTAL [Suspect]
     Active Substance: LAMOTRIGINE
     Indication: PRODUCT USED FOR UNKNOWN INDICATION
     Dosage: 50 MG, UNK
     Route: 048
  4. LAMICTAL [Suspect]
     Active Substance: LAMOTRIGINE
     Dosage: 100 MG, UNK
     Route: 048

REACTIONS (8)
  - Seizure [Recovered/Resolved]
  - Asthma [Recovered/Resolved]
  - Swelling face [Unknown]
  - Headache [Recovered/Resolved]
  - Infection [Recovered/Resolved]
  - Hypersensitivity [Unknown]
  - Dementia [Unknown]
  - Nasal congestion [Recovered/Resolved]
